FAERS Safety Report 13432073 (Version 3)
Quarter: 2020Q4

REPORT INFORMATION
  Report Type: Spontaneous
  Country: US (occurrence: US)
  Receive Date: 20170412
  Receipt Date: 20201001
  Transmission Date: 20210113
  Serious: Yes (Hospitalization)
  Sender: FDA-Public Use
  Company Number: US-JNJFOC-20170316222

PATIENT
  Age: 46 Year
  Sex: Female

DRUGS (5)
  1. COUMADIN [Suspect]
     Active Substance: WARFARIN SODIUM
     Indication: DEEP VEIN THROMBOSIS
     Dosage: 4MG TABLET (1.5 TABLETS BY MOUTH DAILY)
     Route: 048
  2. XARELTO [Suspect]
     Active Substance: RIVAROXABAN
     Route: 048
     Dates: start: 201412, end: 201505
  3. COUMADIN [Suspect]
     Active Substance: WARFARIN SODIUM
     Indication: PULMONARY EMBOLISM
  4. XARELTO [Suspect]
     Active Substance: RIVAROXABAN
     Indication: PULMONARY EMBOLISM
     Dosage: 15 MG 2 TIMES DAILY FOR 20 DAYS THEN RIVAROXABAN 20 MG ONCE DAILY FOR 60 DAYS
     Route: 048
     Dates: start: 201410, end: 201411
  5. XARELTO [Suspect]
     Active Substance: RIVAROXABAN
     Indication: DEEP VEIN THROMBOSIS
     Route: 048
     Dates: start: 20140911, end: 201409

REACTIONS (5)
  - Vaginal haemorrhage [Recovering/Resolving]
  - Overdose [Unknown]
  - Off label use [Unknown]
  - Rectal ulcer haemorrhage [Recovered/Resolved]
  - Hypercoagulation [Unknown]

NARRATIVE: CASE EVENT DATE: 20140911
